FAERS Safety Report 18433354 (Version 1)
Quarter: 2020Q4

REPORT INFORMATION
  Report Type: Spontaneous
  Country: US (occurrence: US)
  Receive Date: 20201028
  Receipt Date: 20201028
  Transmission Date: 20210114
  Serious: No
  Sender: FDA-Public Use
  Company Number: US-LUPIN PHARMACEUTICALS INC.-2020-06134

PATIENT
  Age: 24 Year
  Sex: Female

DRUGS (14)
  1. VANCOMYCIN [Suspect]
     Active Substance: VANCOMYCIN
     Indication: EVIDENCE BASED TREATMENT
     Dosage: 1.5 GRAM, BID
     Route: 065
  2. PENICILLIN G [BENZYLPENICILLIN] [Suspect]
     Active Substance: PENICILLIN G
     Indication: SKIN TEST
     Dosage: 24 MU DAILY (4MU EVERY 4 H)
     Route: 016
  3. CLINDAMYCIN. [Suspect]
     Active Substance: CLINDAMYCIN
     Indication: EVIDENCE BASED TREATMENT
     Dosage: UNK
     Route: 065
  4. PENICILLIN G [BENZYLPENICILLIN] [Suspect]
     Active Substance: PENICILLIN G
     Indication: SKIN TEST
     Dosage: 10000 U/ML
     Route: 065
  5. PENICILLIN G [BENZYLPENICILLIN] [Suspect]
     Active Substance: PENICILLIN G
     Indication: ANTIBIOTIC THERAPY
  6. CLINDAMYCIN. [Suspect]
     Active Substance: CLINDAMYCIN
     Indication: STREPTOBACILLUS INFECTION
  7. AMOXICILLIN + CLAVULANIC ACID [Suspect]
     Active Substance: AMOXICILLIN\CLAVULANIC ACID
     Indication: ANTIBIOTIC THERAPY
     Dosage: UNK
     Route: 048
  8. CEFTRIAXONE. [Suspect]
     Active Substance: CEFTRIAXONE
     Indication: EVIDENCE BASED TREATMENT
     Dosage: 2 GRAM, BID EVERY 12 HR (Q12H)
     Route: 065
  9. HISTAMINE [Suspect]
     Active Substance: HISTAMINE
     Indication: SKIN TEST
     Dosage: 6 MILLIGRAM PER MILLILITRE
     Route: 065
  10. HISTAMINE [Suspect]
     Active Substance: HISTAMINE
     Indication: SKIN TEST
     Dosage: 0.02 MILLIGRAM PER MILLILITRE
     Route: 065
  11. PRE-PEN [Suspect]
     Active Substance: BENZYLPENICILLOYL POLYLYSINE
     Indication: SKIN TEST
  12. PRE-PEN [Suspect]
     Active Substance: BENZYLPENICILLOYL POLYLYSINE
     Indication: SKIN TEST
     Dosage: UNK
     Route: 065
  13. SODIUM CHLORIDE. [Suspect]
     Active Substance: SODIUM CHLORIDE
     Indication: SKIN TEST
     Dosage: UNK
     Route: 065
  14. SODIUM CHLORIDE. [Suspect]
     Active Substance: SODIUM CHLORIDE
     Indication: SKIN TEST

REACTIONS (1)
  - Exposure during pregnancy [Unknown]
